FAERS Safety Report 7053668-8 (Version None)
Quarter: 2010Q4

REPORT INFORMATION
  Report Type: 
  Country: None (occurrence: None)
  Receive Date: 20101020
  Receipt Date: 20101014
  Transmission Date: 20110411
  Serious: Yes (Hospitalization)
  Sender: FDA-Public Use
  Company Number: GB-ELI_LILLY_AND_COMPANY-GB201003003071

PATIENT
  Sex: Female

DRUGS (13)
  1. PEMETREXED [Suspect]
     Indication: NON-SMALL CELL LUNG CANCER
     Dosage: 500 MG/M2, DAY 1 EVERY 21 DAYS
     Route: 042
     Dates: start: 20100218
  2. CISPLATIN [Suspect]
     Indication: NON-SMALL CELL LUNG CANCER
     Dosage: 75 MG/M2, DAY 1 EVERY 21 DAYS
     Route: 042
     Dates: start: 20100218
  3. FOLIC ACID [Concomitant]
     Indication: PROPHYLAXIS
     Dates: start: 20100211
  4. VITAMIN B-12 [Concomitant]
     Indication: PROPHYLAXIS
     Dates: start: 20100211, end: 20100211
  5. DEXAMETHASONE [Concomitant]
     Indication: PROPHYLAXIS
     Dates: start: 20100217, end: 20100217
  6. SIMVASTATIN [Concomitant]
     Indication: PROPHYLAXIS
  7. LANSOPRAZOLE [Concomitant]
     Indication: GASTROOESOPHAGEAL REFLUX DISEASE
  8. BENDROFLUMETHIAZIDE [Concomitant]
     Indication: HYPERTENSION
  9. SERETIDE [Concomitant]
     Indication: DYSPNOEA
     Route: 055
  10. PARACETAMOL [Concomitant]
     Indication: PAIN
  11. DIHYDROCODEINE BITARTRATE INJ [Concomitant]
     Indication: PAIN
  12. GAVISCON /00237601/ [Concomitant]
     Indication: GASTROOESOPHAGEAL REFLUX DISEASE
  13. SALBUTAMOL [Concomitant]
     Indication: DYSPNOEA

REACTIONS (1)
  - EPISTAXIS [None]
